FAERS Safety Report 6813200-8 (Version None)
Quarter: 2010Q3

REPORT INFORMATION
  Report Type: 
  Country: None (occurrence: None)
  Receive Date: 20100701
  Receipt Date: 20100601
  Transmission Date: 20110219
  Serious: Yes (Life-Threatening, Hospitalization, Other)
  Sender: FDA-Public Use
  Company Number: CA-BAYER-201012702NA

PATIENT
  Age: 74 Year
  Sex: Male
  Weight: 97 kg

DRUGS (70)
  1. TRASYLOL [Suspect]
     Indication: PRODUCT USED FOR UNKNOWN INDICATION
     Route: 042
  2. PLACEBO INVESTIGATIONAL PRODUCT (CMI X-11S) [Suspect]
     Indication: PRODUCT USED FOR UNKNOWN INDICATION
     Route: 051
  3. PLACEBO INVESTIGATIONAL PRODUCT (CMI X-11S) [Suspect]
     Route: 051
  4. ACETAMINOPHEN [Concomitant]
  5. ACETAMINOPHEN W/ CODEINE [Concomitant]
  6. ACETYLSALICYLIC ACID [Concomitant]
  7. AKABUTUS MOUTH WASH [Concomitant]
  8. ALBUMIN (HUMAN) [Concomitant]
     Route: 042
  9. AMIODARONE [Concomitant]
  10. BISACODYL [Concomitant]
  11. BISOPROLOL FUMARATE [Concomitant]
  12. CALCIUM GLUCONATE [Concomitant]
  13. CEFAZOLIN [Concomitant]
     Route: 030
  14. CHLORHEXIDINE [Concomitant]
  15. CIPROFLOXACIN [Concomitant]
  16. CRESTOR [Concomitant]
  17. DOBUTAMINE HCL [Concomitant]
     Route: 042
  18. DOCUSATE SODIUM [Concomitant]
  19. DOMPERIDONE [Concomitant]
  20. DOPAMINE HCL [Concomitant]
  21. EDECRIN [Concomitant]
  22. EPHEDRINE HYDROCHLORIDE [Concomitant]
  23. FENTANYL [Concomitant]
  24. FLUCONAZOLE [Concomitant]
  25. FOLATE [Concomitant]
  26. FRESH FROZEN PLASMA [Concomitant]
  27. FUROSEMIDE [Concomitant]
  28. HALOPERIDOL [Concomitant]
  29. HEPARIN SODIUM [Concomitant]
     Route: 042
  30. HYDROCORTISONE SODIUM SUCCINATE [Concomitant]
  31. INSULIN [Concomitant]
  32. INSULIN ISOPHANE [Concomitant]
  33. LACTULOSE [Concomitant]
  34. LIDOCAINE [Concomitant]
  35. MAGNESIUM GLUCOHEPTONATE [Concomitant]
  36. MAGNESIUM SULFATE [Concomitant]
  37. METFORMIN HCL [Concomitant]
  38. METOLAZONE [Concomitant]
  39. METOPROLOL TARTRATE [Concomitant]
  40. MIDAZOLAM HCL [Concomitant]
     Route: 030
  41. MILRINONE [Concomitant]
     Route: 042
  42. MORPHINE [Concomitant]
  43. NEOSTIGMINE METILSULFATE INJECTION USP [Concomitant]
     Route: 030
  44. NIMBEX [Concomitant]
     Route: 042
  45. NITROUS OXIDE [Concomitant]
  46. NOREPINEPHRINE [Concomitant]
  47. OMEPRAZOLE [Concomitant]
  48. OXYCODONE HCL [Concomitant]
  49. RED BLOOD CELLS [Concomitant]
  50. PANTOPRAZOLE [Concomitant]
  51. PENTASPAN [Concomitant]
     Route: 042
  52. PIPERACILLIN AND TAZOBACTAM [Concomitant]
  53. PLASMALYTE 148 IN WATER [Concomitant]
     Route: 042
  54. POTASSIUM CHLORIDE [Concomitant]
  55. POTASSIUM PHOSPHATE INJECTIONS USP [Concomitant]
     Route: 042
  56. PREDNISONE TAB [Concomitant]
  57. PRIMAXIN INJECTION [Concomitant]
     Route: 030
  58. PROCAINAMIDE [Concomitant]
  59. PROPOFOL [Concomitant]
  60. RAMIPRIL [Concomitant]
  61. RANITIDINE [Concomitant]
  62. REPLAVITE [Concomitant]
  63. ROCURONIUM [Concomitant]
  64. SENNOSIDES [Concomitant]
  65. SILDENAFIL [Concomitant]
  66. SODIUM BICARBONATE [Concomitant]
  67. SODIUM NITROPRUSSIDE [Concomitant]
     Route: 042
  68. SODIUM PHOSPHATE [Concomitant]
  69. VITAMIN K TAB [Concomitant]
  70. VOLUVEN [Concomitant]
     Route: 042

REACTIONS (13)
  - CARDIOGENIC SHOCK [None]
  - IMPLANTABLE DEFIBRILLATOR INSERTION [None]
  - MECHANICAL VENTILATION [None]
  - PNEUMONIA [None]
  - PULMONARY HYPERTENSION [None]
  - PULMONARY OEDEMA [None]
  - RENAL FAILURE [None]
  - RESPIRATORY FAILURE [None]
  - SEPSIS [None]
  - THROMBOCYTOPENIA [None]
  - TRACHEOSTOMY [None]
  - VENTRICULAR FIBRILLATION [None]
  - VENTRICULAR TACHYCARDIA [None]
